FAERS Safety Report 5866175-2 (Version None)
Quarter: 2008Q3

REPORT INFORMATION
  Report Type: 
  Country: None (occurrence: None)
  Receive Date: 20080829
  Receipt Date: 20080826
  Transmission Date: 20090109
  Serious: Yes (Hospitalization)
  Sender: FDA-Public Use
  Company Number: US-MERCK-0808USA04811

PATIENT
  Age: 40 Year
  Sex: Male

DRUGS (2)
  1. COZAAR [Suspect]
     Indication: BLOOD PRESSURE
     Route: 048
  2. LITHIUM CARBONATE [Concomitant]
     Route: 065

REACTIONS (1)
  - ARRHYTHMIA [None]
